FAERS Safety Report 23930030 (Version 1)
Quarter: 2024Q2

REPORT INFORMATION
  Report Type: Spontaneous
  Country: US (occurrence: US)
  Receive Date: 20240601
  Receipt Date: 20240601
  Transmission Date: 20240715
  Serious: Yes (Other)
  Sender: FDA-Public Use
  Company Number: US-AUROBINDO-AUR-APL-2024-026083

PATIENT
  Age: 48 Year
  Sex: Male

DRUGS (6)
  1. CYCLOBENZAPRINE [Suspect]
     Active Substance: CYCLOBENZAPRINE
     Indication: Paraneoplastic syndrome
     Dosage: 10 MILLIGRAM, 3 TIMES A DAY
     Route: 065
  2. BACLOFEN [Suspect]
     Active Substance: BACLOFEN
     Indication: Paraneoplastic syndrome
     Dosage: 5 MILLIGRAM, DAILY
     Route: 065
  3. CISPLATIN [Suspect]
     Active Substance: CISPLATIN
     Indication: Lung neoplasm
     Dosage: UNK
     Route: 065
     Dates: start: 2017
  4. ETOPOSIDE [Suspect]
     Active Substance: ETOPOSIDE
     Indication: Lung neoplasm
     Dosage: UNK
     Route: 065
     Dates: start: 2017
  5. NIVOLUMAB [Suspect]
     Active Substance: NIVOLUMAB
     Indication: Carcinoid tumour
     Dosage: UNK, 16 CYCLES
     Route: 065
  6. VOROLANIB [Suspect]
     Active Substance: VOROLANIB
     Indication: Carcinoid tumour
     Dosage: UNK
     Route: 065

REACTIONS (1)
  - Drug ineffective [Unknown]
